FAERS Safety Report 13527043 (Version 1)
Quarter: 2017Q2

REPORT INFORMATION
  Report Type: Spontaneous
  Country: US (occurrence: US)
  Receive Date: 20170509
  Receipt Date: 20170509
  Transmission Date: 20170830
  Serious: Yes (Other)
  Sender: FDA-Public Use
  Company Number: US-JNJFOC-20170430242

PATIENT
  Age: 75 Year
  Sex: Male
  Weight: 116.5 kg

DRUGS (1)
  1. BENADRYL [Suspect]
     Active Substance: DIPHENHYDRAMINE HYDROCHLORIDE
     Indication: PRODUCT USED FOR UNKNOWN INDICATION
     Route: 065

REACTIONS (7)
  - Dysphonia [Unknown]
  - Hypersensitivity [Unknown]
  - Vomiting [Unknown]
  - Seizure [Unknown]
  - Blood pressure decreased [Unknown]
  - Blood pressure fluctuation [Unknown]
  - Nausea [Unknown]
